FAERS Safety Report 7155672-8 (Version None)
Quarter: 2010Q4

REPORT INFORMATION
  Report Type: 
  Country: None (occurrence: None)
  Receive Date: 20101214
  Receipt Date: 20101201
  Transmission Date: 20110411
  Serious: Yes (Hospitalization, Other)
  Sender: FDA-Public Use
  Company Number: US-PAR PHARMACEUTICAL, INC-2010SCPR002320

PATIENT
  Age: 20 Year
  Sex: Female

DRUGS (2)
  1. DISULFIRAM [Suspect]
     Indication: PRODUCT USED FOR UNKNOWN INDICATION
     Dosage: 7500 MG, UNKNOWN
     Route: 048
  2. ETHANOL [Suspect]
     Indication: PRODUCT USED FOR UNKNOWN INDICATION
     Dosage: UNK
     Route: 048

REACTIONS (6)
  - DRUG INTERACTION [None]
  - FLUSHING [None]
  - HYPOTENSION [None]
  - LIP SWELLING [None]
  - OVERDOSE [None]
  - TACHYCARDIA [None]
